FAERS Safety Report 7526106-6 (Version None)
Quarter: 2011Q2

REPORT INFORMATION
  Report Type: 
  Country: None (occurrence: None)
  Receive Date: 20110606
  Receipt Date: 20110601
  Transmission Date: 20111010
  Serious: Yes (Other)
  Sender: FDA-Public Use
  Company Number: US-MERCK-1106USA00182

PATIENT
  Age: 18 Year
  Sex: Male

DRUGS (1)
  1. IVEMEND [Suspect]
     Indication: PROPHYLAXIS OF NAUSEA AND VOMITING
     Route: 041
     Dates: start: 20110501

REACTIONS (3)
  - CHEST DISCOMFORT [None]
  - BACK PAIN [None]
  - DYSPNOEA [None]
